FAERS Safety Report 5583100-2 (Version None)
Quarter: 2007Q4

REPORT INFORMATION
  Report Type: 
  Country: None (occurrence: None)
  Receive Date: 20071231
  Receipt Date: 20071219
  Transmission Date: 20080405
  Serious: Yes (Life-Threatening, Hospitalization, Disabling)
  Sender: FDA-Public Use
  Company Number: ENTC2007-0364

PATIENT
  Age: 60 Year
  Sex: Male

DRUGS (3)
  1. STALEVO 100 [Suspect]
     Dosage: ORAL, 200-400 DF ONCE/SINGLE ORAL
     Route: 048
     Dates: start: 20050501, end: 20050501
  2. STALEVO 100 [Suspect]
     Dosage: ORAL, 200-400 DF ONCE/SINGLE ORAL
     Route: 048
     Dates: end: 20050501
  3. EFFEXOR [Suspect]
     Dosage: SOME BOXES, ONCE/SINGLE ORAL
     Route: 048
     Dates: start: 20050501, end: 20050501

REACTIONS (10)
  - AGITATION [None]
  - CAROTID ARTERY DISSECTION [None]
  - CHROMATURIA [None]
  - COMA [None]
  - DYSKINESIA [None]
  - HEMIPLEGIA [None]
  - INTENTIONAL OVERDOSE [None]
  - RENAL FAILURE [None]
  - SKIN DISCOLOURATION [None]
  - SUICIDE ATTEMPT [None]
